FAERS Safety Report 5642022-9 (Version None)
Quarter: 2008Q1

REPORT INFORMATION
  Report Type: 
  Country: None (occurrence: None)
  Receive Date: 20080225
  Receipt Date: 20080121
  Transmission Date: 20080703
  Serious: No
  Sender: FDA-Public Use
  Company Number: 001#1#2008-00048

PATIENT
  Age: 65 Year
  Sex: Female

DRUGS (2)
  1. NEUPRO [Suspect]
     Indication: OFF LABEL USE
     Dosage: 4 MG/24H (4 MG/24H 1 IN 1 DAY(S)) TRANSDERMAL
     Route: 062
     Dates: start: 20070701, end: 20080101
  2. NEUPRO [Suspect]
     Indication: RESTLESS LEGS SYNDROME
     Dosage: 4 MG/24H (4 MG/24H 1 IN 1 DAY(S)) TRANSDERMAL
     Route: 062
     Dates: start: 20070701, end: 20080101

REACTIONS (1)
  - APPLICATION SITE DERMATITIS [None]
